FAERS Safety Report 18440084 (Version 1)
Quarter: 2020Q4

REPORT INFORMATION
  Report Type: Spontaneous
  Country: US (occurrence: US)
  Receive Date: 20201028
  Receipt Date: 20201028
  Transmission Date: 20210114
  Serious: Yes (Other)
  Sender: FDA-Public Use
  Company Number: None

PATIENT
  Age: 47 Year
  Sex: Female
  Weight: 75.6 kg

DRUGS (1)
  1. NP THYROID [Suspect]
     Active Substance: LEVOTHYROXINE\LIOTHYRONINE
     Indication: HYPOTHYROIDISM
     Dosage: ?          QUANTITY:1 CAPSULE(S);?
     Route: 048
     Dates: start: 20200901, end: 20201028

REACTIONS (8)
  - Swelling face [None]
  - Blood thyroid stimulating hormone increased [None]
  - Manufacturing materials issue [None]
  - Alopecia [None]
  - Eye swelling [None]
  - Wrong dose [None]
  - Fatigue [None]
  - Anaphylactic reaction [None]

NARRATIVE: CASE EVENT DATE: 20201001
